FAERS Safety Report 10205063 (Version 1)
Quarter: 2014Q2

REPORT INFORMATION
  Report Type: Spontaneous
  Country: GB (occurrence: GB)
  Receive Date: 20140529
  Receipt Date: 20140529
  Transmission Date: 20141212
  Serious: Yes (Other)
  Sender: FDA-Public Use
  Company Number: GB-WATSON-2014-10847

PATIENT
  Age: 72 Year
  Sex: Female
  Weight: 74 kg

DRUGS (4)
  1. DOXAZOSIN (UNKNOWN) [Suspect]
     Indication: PRODUCT USED FOR UNKNOWN INDICATION
     Dosage: 1 MG, UNKNOWN
     Route: 005
     Dates: start: 20140502
  2. DOXAZOSIN (UNKNOWN) [Suspect]
     Dosage: UNK
     Route: 065
     Dates: start: 20140124, end: 20140221
  3. DOXAZOSIN (UNKNOWN) [Suspect]
     Dosage: UNK
     Route: 065
     Dates: start: 20140324, end: 20140421
  4. CO-CODAMOL [Concomitant]
     Indication: PRODUCT USED FOR UNKNOWN INDICATION
     Dosage: UNK
     Route: 065
     Dates: start: 20140318, end: 20140328

REACTIONS (1)
  - Epistaxis [Recovered/Resolved]
